FAERS Safety Report 11168114 (Version 1)
Quarter: 2015Q2

REPORT INFORMATION
  Report Type: Report from Study
  Country: CA (occurrence: CA)
  Receive Date: 20150605
  Receipt Date: 20150605
  Transmission Date: 20150821
  Serious: Yes (Death, Other)
  Sender: FDA-Public Use
  Company Number: CA-GILEAD-2015-0156686

PATIENT
  Sex: Female

DRUGS (1)
  1. SOFOSBUVIR [Suspect]
     Active Substance: SOFOSBUVIR
     Indication: HEPATITIS C
     Dosage: UNK
     Route: 048
     Dates: start: 2014, end: 2014

REACTIONS (1)
  - Death [Fatal]

NARRATIVE: CASE EVENT DATE: 2014
